FAERS Safety Report 13247384 (Version 1)
Quarter: 2017Q1

REPORT INFORMATION
  Report Type: Spontaneous
  Country: CN (occurrence: CN)
  Receive Date: 20170217
  Receipt Date: 20170217
  Transmission Date: 20170428
  Serious: Yes (Other)
  Sender: FDA-Public Use
  Company Number: CN-PFIZER INC-2017069838

PATIENT
  Age: 3 Year
  Sex: Male
  Weight: 14 kg

DRUGS (2)
  1. GLUCOSE INJECTION [Concomitant]
     Indication: VEHICLE SOLUTION USE
     Dosage: 150 ML, 1X/DAY
     Route: 041
     Dates: start: 20161209, end: 20161209
  2. ZITHROMAX [Suspect]
     Active Substance: AZITHROMYCIN DIHYDRATE
     Indication: INFECTION
     Dosage: 0.14 G, 1X/DAY
     Route: 041
     Dates: start: 20161209, end: 20161209

REACTIONS (3)
  - Haematemesis [Recovered/Resolved]
  - Abdominal pain [Recovered/Resolved]
  - Vomiting [Recovered/Resolved]

NARRATIVE: CASE EVENT DATE: 20161209
